FAERS Safety Report 24527303 (Version 1)
Quarter: 2024Q4

REPORT INFORMATION
  Report Type: Spontaneous
  Country: US (occurrence: US)
  Receive Date: 20241021
  Receipt Date: 20241021
  Transmission Date: 20250114
  Serious: No
  Sender: ROCHE
  Company Number: US-ROCHE-3562680

PATIENT
  Sex: Female

DRUGS (1)
  1. COTELLIC [Suspect]
     Active Substance: COBIMETINIB
     Indication: Histiocytic sarcoma
     Dosage: 2 TABLETS
     Route: 048
     Dates: start: 202403

REACTIONS (2)
  - Dysuria [Unknown]
  - Off label use [Unknown]

NARRATIVE: CASE EVENT DATE: 20240301
